FAERS Safety Report 8828151 (Version 1)
Quarter: 2012Q4

REPORT INFORMATION
  Report Type: 
  Country: VE (occurrence: VE)
  Receive Date: 20121005
  Receipt Date: 20121005
  Transmission Date: 20130627
  Serious: Yes (Death)
  Sender: FDA-Public Use
  Company Number: VE-PFIZER INC-2012244881

PATIENT
  Sex: Female

DRUGS (2)
  1. LIPITOR [Suspect]
     Dosage: 40 mg, UNK
  2. ZOLOFT [Concomitant]
     Dosage: 50 mg, UNK

REACTIONS (1)
  - Death [Fatal]
